FAERS Safety Report 5206088-2 (Version None)
Quarter: 2007Q1

REPORT INFORMATION
  Report Type: 
  Country: None (occurrence: None)
  Receive Date: 20070111
  Receipt Date: 20061212
  Transmission Date: 20070707
  Serious: Yes (Other)
  Sender: FDA-Public Use
  Company Number: 2007UW00280

PATIENT
  Age: 67 Year
  Sex: Male

DRUGS (1)
  1. XYLOCAINE TOPICAL FILM [Suspect]
     Route: 061

REACTIONS (4)
  - BURNING SENSATION [None]
  - DRUG INEFFECTIVE [None]
  - URINARY RETENTION [None]
  - URINARY TRACT INFECTION [None]
